FAERS Safety Report 21916757 (Version 1)
Quarter: 2023Q1

REPORT INFORMATION
  Report Type: Spontaneous
  Country: US (occurrence: None)
  Receive Date: 20230125
  Receipt Date: 20230125
  Transmission Date: 20230417
  Serious: Yes (Hospitalization)
  Sender: FDA-Public Use
  Company Number: None

PATIENT
  Sex: Female

DRUGS (3)
  1. AMLODIPINE [Suspect]
     Active Substance: AMLODIPINE BESYLATE
     Indication: Essential hypertension
     Dosage: 5 MG ONCE A DAY ORAL?
     Route: 048
     Dates: start: 202207
  2. ENTECAVIR [Suspect]
     Active Substance: ENTECAVIR
     Indication: Insomnia
     Dosage: 1 MG DAILY ORAL
     Route: 048
     Dates: start: 201912
  3. ENTECAVIR [Suspect]
     Active Substance: ENTECAVIR
     Indication: Keratitis

REACTIONS (2)
  - Blood pressure increased [None]
  - Vomiting [None]
